FAERS Safety Report 8763445 (Version 2)
Quarter: 2012Q4

REPORT INFORMATION
  Report Type: 
  Country: JP (occurrence: JP)
  Receive Date: 20120831
  Receipt Date: 20121231
  Transmission Date: 20130627
  Serious: No
  Sender: FDA-Public Use
  Company Number: JP-009507513-1208JPN011163

PATIENT

DRUGS (16)
  1. PEGINTRON [Suspect]
     Indication: CHRONIC HEPATITIS C
     Dosage: 1.2 Microgram per kilogram, qw
     Route: 058
     Dates: start: 20120428, end: 20120428
  2. PEGINTRON [Suspect]
     Dosage: 0.77 Microgram per kilogram, qw
     Route: 058
     Dates: start: 20120505, end: 20120511
  3. PEGINTRON [Suspect]
     Dosage: 0.60 Microgram per kilogram, qw
     Route: 058
     Dates: start: 20120518, end: 20120525
  4. PEGINTRON [Suspect]
     Dosage: 0.45 Microgram per kilogram, qw
     Route: 058
     Dates: start: 20120601
  5. PEGINTRON [Suspect]
     Dosage: 0.5 Microgram per kilogram, qw
     Route: 058
     Dates: end: 20120614
  6. PEGINTRON [Suspect]
     Dosage: 0.3 Microgram per kilogram, qw
     Route: 058
     Dates: start: 20120615, end: 20120621
  7. PEGINTRON [Suspect]
     Dosage: 0.2 Microgram per kilogram, qw
     Route: 058
     Dates: start: 20120622
  8. REBETOL [Suspect]
     Indication: CHRONIC HEPATITIS C
     Dosage: 400 mg, qd
     Route: 048
     Dates: start: 20120428, end: 20120614
  9. REBETOL [Suspect]
     Dosage: 200 mg, qd
     Route: 048
     Dates: start: 20120615
  10. TELAVIC [Suspect]
     Indication: CHRONIC HEPATITIS C
     Dosage: 2250 mg, qd
     Route: 048
     Dates: start: 20120428, end: 20120616
  11. TELAVIC [Suspect]
     Dosage: 1500 mg, qd
     Route: 048
     Dates: start: 20120617, end: 20120721
  12. [THERAPY UNSPECIFIED] [Concomitant]
     Indication: CHRONIC HEPATITIS C
     Dosage: 2.9 ml, qd
     Route: 042
     Dates: end: 20120608
  13. URSO [Concomitant]
     Indication: CHRONIC HEPATITIS C
     Dosage: 600 mg, qd, Formulation: POR
     Route: 048
  14. LAENNEC [Concomitant]
     Indication: CHRONIC HEPATITIS C
     Dosage: 0.57 DF, qd
     Route: 058
  15. TALION (BEPOTASTINE BESYLATE) [Concomitant]
     Indication: PROPHYLAXIS
     Dosage: 20 mg, qd
     Route: 048
  16. PARIET [Concomitant]
     Indication: GASTRIC ULCER
     Dosage: 10 mg, qd, Formulation: POR
     Route: 048

REACTIONS (2)
  - Pancytopenia [Recovered/Resolved]
  - White blood cell count decreased [Not Recovered/Not Resolved]
